FAERS Safety Report 7235059-X (Version None)
Quarter: 2011Q1

REPORT INFORMATION
  Report Type: 
  Country: None (occurrence: None)
  Receive Date: 20110120
  Receipt Date: 20101230
  Transmission Date: 20110831
  Serious: Yes (Death)
  Sender: FDA-Public Use
  Company Number: US-PAR PHARMACEUTICAL, INC-2011SCPR002552

PATIENT
  Age: 20 Year
  Sex: Female

DRUGS (2)
  1. ALPRAZOLAM [Suspect]
     Indication: PRODUCT USED FOR UNKNOWN INDICATION
     Dosage: UNK
  2. CARBON MONOXIDE [Suspect]
     Indication: PRODUCT USED FOR UNKNOWN INDICATION
     Dosage: UNK

REACTIONS (13)
  - HEART RATE INCREASED [None]
  - RESPIRATORY RATE INCREASED [None]
  - RESPIRATION ABNORMAL [None]
  - CARBOXYHAEMOGLOBIN INCREASED [None]
  - HYPERSENSITIVITY [None]
  - BREATH SOUNDS ABNORMAL [None]
  - BLOOD BICARBONATE DECREASED [None]
  - PNEUMONIA [None]
  - DEATH [None]
  - OXYGEN SATURATION DECREASED [None]
  - BLOOD GASES ABNORMAL [None]
  - TROPONIN INCREASED [None]
  - VENTRICULAR EXTRASYSTOLES [None]
